FAERS Safety Report 6635562-7 (Version None)
Quarter: 2010Q1

REPORT INFORMATION
  Report Type: 
  Country: None (occurrence: None)
  Receive Date: 20100315
  Receipt Date: 20100119
  Transmission Date: 20100710
  Serious: Yes (Hospitalization)
  Sender: FDA-Public Use
  Company Number: US-ABBOTT-10P-163-0620543-00

PATIENT
  Sex: Female

DRUGS (7)
  1. DEPAKOTE [Suspect]
     Indication: EPILEPSY
     Dates: start: 20091001, end: 20100119
  2. MUSCLE RELAXER [Suspect]
     Indication: DRUG USE FOR UNKNOWN INDICATION
     Dates: start: 20091101, end: 20091101
  3. MUSCLE RELAXER [Suspect]
     Dates: start: 20091101, end: 20091101
  4. METOPROLOL TARTRATE [Concomitant]
     Indication: HYPERTENSION
  5. FUROSEMIDE [Concomitant]
     Indication: CARDIAC FAILURE CONGESTIVE
  6. OXYBUTYNIN [Concomitant]
     Indication: BLADDER DILATATION
     Dosage: UNKNOWN
  7. POTASSIUM [Concomitant]
     Indication: MINERAL SUPPLEMENTATION
     Dosage: UNKNOWN

REACTIONS (2)
  - CONVULSION [None]
  - OROPHARYNGEAL PAIN [None]
